FAERS Safety Report 20197956 (Version 1)
Quarter: 2021Q4

REPORT INFORMATION
  Report Type: Spontaneous
  Country: US (occurrence: US)
  Receive Date: 20211217
  Receipt Date: 20211217
  Transmission Date: 20220304
  Serious: No
  Sender: FDA-Public Use
  Company Number: US-ALLERGAN-2103416US

PATIENT
  Age: 67 Year
  Sex: Female

DRUGS (7)
  1. PREDNISOLONE ACETATE [Suspect]
     Active Substance: PREDNISOLONE ACETATE
     Indication: Postoperative care
     Dosage: 1 GTT, BID
     Route: 047
     Dates: start: 20210127
  2. PREDNISOLONE ACETATE [Suspect]
     Active Substance: PREDNISOLONE ACETATE
     Dosage: 1 GTT, QID
     Route: 047
     Dates: start: 20210113, end: 20210126
  3. BUSPIRONE [Concomitant]
     Active Substance: BUSPIRONE HYDROCHLORIDE
     Indication: Sleep disorder
     Dosage: 5 MG, QHS
     Route: 048
  4. OFLOXACIN [Concomitant]
     Active Substance: OFLOXACIN
     Indication: Preoperative care
     Dosage: UNK
     Dates: start: 20210111
  5. PROLENSA [Concomitant]
     Active Substance: BROMFENAC SODIUM
     Indication: Preoperative care
     Dosage: UNK
     Dates: start: 20210111
  6. PRINIVIL [Concomitant]
     Active Substance: LISINOPRIL
     Indication: Hypertension
  7. TOPROL XL [Concomitant]
     Active Substance: METOPROLOL SUCCINATE
     Indication: Heart rate decreased
     Dosage: 25 MG, QD
     Route: 048

REACTIONS (2)
  - Blood pressure systolic increased [Not Recovered/Not Resolved]
  - Headache [Not Recovered/Not Resolved]

NARRATIVE: CASE EVENT DATE: 20210113
